FAERS Safety Report 20020205 (Version 1)
Quarter: 2021Q4

REPORT INFORMATION
  Report Type: Spontaneous
  Country: DE (occurrence: DE)
  Receive Date: 20211101
  Receipt Date: 20211101
  Transmission Date: 20220303
  Serious: Yes (Hospitalization, Other)
  Sender: FDA-Public Use
  Company Number: DE-PHARMATHEN-GPV2021PHT053182

PATIENT
  Age: 55 Year
  Sex: Male

DRUGS (1)
  1. DIMETHYL FUMARATE [Suspect]
     Active Substance: DIMETHYL FUMARATE
     Indication: Relapsing-remitting multiple sclerosis
     Dosage: 480 MG/DAY
     Dates: start: 202004, end: 202101

REACTIONS (5)
  - Meningism [Recovering/Resolving]
  - Cytomegalovirus infection [Recovering/Resolving]
  - Urosepsis [Recovering/Resolving]
  - Lymphopenia [Unknown]
  - Meningitis viral [Recovering/Resolving]
